APPROVED DRUG PRODUCT: MESALAMINE
Active Ingredient: MESALAMINE
Strength: 800MG
Dosage Form/Route: TABLET, DELAYED RELEASE;ORAL
Application: A213191 | Product #001 | TE Code: AB
Applicant: TEVA PHARMACEUTICALS INC
Approved: Aug 22, 2024 | RLD: No | RS: No | Type: RX